FAERS Safety Report 9400337 (Version 1)
Quarter: 2013Q3

REPORT INFORMATION
  Report Type: Spontaneous
  Country: TR (occurrence: TR)
  Receive Date: 20130715
  Receipt Date: 20130715
  Transmission Date: 20140515
  Serious: Yes (Hospitalization)
  Sender: FDA-Public Use
  Company Number: PHHY2013TR072682

PATIENT
  Age: 64 Year
  Sex: Female

DRUGS (1)
  1. METRONIDAZOLE [Suspect]
     Indication: COLITIS ULCERATIVE
     Dosage: 1500 MG, UNK

REACTIONS (4)
  - Toxicity to various agents [Unknown]
  - Brain injury [Unknown]
  - Ataxia [Unknown]
  - Dysarthria [Unknown]
